FAERS Safety Report 11220154 (Version 2)
Quarter: 2015Q3

REPORT INFORMATION
  Report Type: Spontaneous
  Country: US (occurrence: US)
  Receive Date: 20150625
  Receipt Date: 20150714
  Transmission Date: 20151125
  Serious: Yes (Death, Other)
  Sender: FDA-Public Use
  Company Number: US-LUNDBECK-DKLU2000609

PATIENT
  Sex: Female

DRUGS (3)
  1. NORTHERA [Suspect]
     Active Substance: DROXIDOPA
     Indication: POSTURAL ORTHOSTATIC TACHYCARDIA SYNDROME
     Route: 065
  2. SLEEPING PILLS [Suspect]
     Active Substance: UNSPECIFIED INGREDIENT
     Indication: PRODUCT USED FOR UNKNOWN INDICATION
     Route: 065
  3. XANAX [Suspect]
     Active Substance: ALPRAZOLAM
     Indication: PRODUCT USED FOR UNKNOWN INDICATION
     Route: 048

REACTIONS (3)
  - Depression [Unknown]
  - Completed suicide [Fatal]
  - Personality change [Unknown]

NARRATIVE: CASE EVENT DATE: 20150616
